FAERS Safety Report 17690400 (Version 1)
Quarter: 2020Q2

REPORT INFORMATION
  Report Type: Spontaneous
  Country: US (occurrence: US)
  Receive Date: 20200421
  Receipt Date: 20200421
  Transmission Date: 20200714
  Serious: No
  Sender: FDA-Public Use
  Company Number: US-BAUSCH-BL-2020-009368

PATIENT
  Sex: Female

DRUGS (2)
  1. LATANOPROST OPHTHALMIC SOLUTION 0.005% [Suspect]
     Active Substance: LATANOPROST
     Indication: GLAUCOMA
     Dosage: USING FOR MANY YEARS, 1 DROP ONCE DAILY IN EACH EYE
     Route: 047
  2. LATANOPROST. [Suspect]
     Active Substance: LATANOPROST
     Indication: GLAUCOMA
     Dosage: STARTED MANY YEARS AGO, 1 DROP ONCE DAILY IN EACH EYE
     Route: 047

REACTIONS (1)
  - Blepharal pigmentation [Not Recovered/Not Resolved]

NARRATIVE: CASE EVENT DATE: 202003
